FAERS Safety Report 12316451 (Version 2)
Quarter: 2016Q2

REPORT INFORMATION
  Report Type: Spontaneous
  Country: US (occurrence: US)
  Receive Date: 20160429
  Receipt Date: 20160506
  Transmission Date: 20160815
  Serious: Yes (Hospitalization, Other)
  Sender: FDA-Public Use
  Company Number: US-AMGEN-USASP2016052885

PATIENT
  Age: 84 Year
  Sex: Female

DRUGS (3)
  1. PROLIA [Suspect]
     Active Substance: DENOSUMAB
     Dosage: UNK, UNK
     Route: 065
     Dates: start: 20160223
  2. PROLIA [Suspect]
     Active Substance: DENOSUMAB
     Dosage: UNK, UNK
     Route: 065
     Dates: start: 20150728
  3. PROLIA [Suspect]
     Active Substance: DENOSUMAB
     Indication: OSTEOPOROSIS POSTMENOPAUSAL
     Dosage: UNK
     Route: 065
     Dates: start: 20150123

REACTIONS (2)
  - Atypical fracture [Unknown]
  - Bone operation [Unknown]
